FAERS Safety Report 19199351 (Version 2)
Quarter: 2021Q2

REPORT INFORMATION
  Report Type: Spontaneous
  Country: ZA (occurrence: ZA)
  Receive Date: 20210430
  Receipt Date: 20210507
  Transmission Date: 20210717
  Serious: Yes (Hospitalization)
  Sender: FDA-Public Use
  Company Number: NVSC2021ZA090416

PATIENT
  Age: 74 Year
  Sex: Male

DRUGS (13)
  1. TRUSTAN [Concomitant]
     Active Substance: ESOMEPRAZOLE
     Indication: PRODUCT USED FOR UNKNOWN INDICATION
     Dosage: 40 MG, QD (REPEAT X 6)
     Route: 048
  2. CORALAN [Concomitant]
     Active Substance: IVABRADINE HYDROCHLORIDE
     Indication: PRODUCT USED FOR UNKNOWN INDICATION
     Dosage: 5 MG, QD (REPEAT X 6)
     Route: 048
  3. ZOPIVANE [Concomitant]
     Active Substance: ZOPICLONE
     Indication: PRODUCT USED FOR UNKNOWN INDICATION
     Dosage: 7.5 MG, QHS (REPEAT X 6)
     Route: 048
  4. CARVEDILOL. [Suspect]
     Active Substance: CARVEDILOL
     Indication: CARDIAC FAILURE
     Dosage: 25 MG, BID (REPEAT X 6)
     Route: 048
  5. ZOMEVEK [Suspect]
     Active Substance: VALSARTAN
     Indication: HYPERTENSION
     Dosage: 80 MG, BID (REPEAT X 6)
     Route: 048
  6. SPIRACTIN [Concomitant]
     Indication: PRODUCT USED FOR UNKNOWN INDICATION
     Dosage: 25 MG, BID (HALF TABLET? REPEAT X 6)
     Route: 048
  7. OXPOLA [Concomitant]
     Active Substance: PRAMIPEXOLE DIHYDROCHLORIDE
     Indication: PRODUCT USED FOR UNKNOWN INDICATION
     Dosage: 1 MG, QHS (TAKE HALF TABLET, REPEAT X 6)
     Route: 048
  8. ZUVAMOR [Concomitant]
     Active Substance: ROSUVASTATIN
     Indication: PRODUCT USED FOR UNKNOWN INDICATION
     Dosage: 10 MG, QD (REPEAT X 6)
     Route: 048
  9. TREPILINE [Concomitant]
     Active Substance: AMITRIPTYLINE
     Indication: PRODUCT USED FOR UNKNOWN INDICATION
     Dosage: 25 MG, QHS (REPEAT X 6)
     Route: 048
  10. CORALAN [Concomitant]
     Active Substance: IVABRADINE HYDROCHLORIDE
     Dosage: 7.5 MG NOCTE
     Route: 048
  11. LASIX [Concomitant]
     Active Substance: FUROSEMIDE
     Indication: PRODUCT USED FOR UNKNOWN INDICATION
     Dosage: 20 MG, TID (REPEAT X 6)
     Route: 048
  12. ECOTRIN [Concomitant]
     Active Substance: ASPIRIN
     Indication: PRODUCT USED FOR UNKNOWN INDICATION
     Dosage: 81 MG, QD (REPEAT X 6)
     Route: 048
  13. ZUVAMOR [Concomitant]
     Active Substance: ROSUVASTATIN
     Dosage: 10 MG, QHS (REPEAT X 6)
     Route: 048

REACTIONS (4)
  - Cardiac failure [Unknown]
  - Nausea [Unknown]
  - Decreased appetite [Unknown]
  - Fatigue [Unknown]
